FAERS Safety Report 5322602-0 (Version None)
Quarter: 2007Q2

REPORT INFORMATION
  Report Type: 
  Country: None (occurrence: None)
  Receive Date: 20070511
  Receipt Date: 20070509
  Transmission Date: 20071010
  Serious: Yes (Other)
  Sender: FDA-Public Use
  Company Number: US-BRISTOL-MYERS SQUIBB COMPANY-13742424

PATIENT
  Age: 19 Year
  Sex: Female

DRUGS (3)
  1. ABILIFY [Suspect]
     Indication: ANOREXIA NERVOSA
     Route: 048
     Dates: start: 20070401
  2. ABILIFY [Suspect]
     Indication: DELUSION
     Route: 048
     Dates: start: 20070401
  3. CELEXA [Concomitant]

REACTIONS (2)
  - CARDIAC DISORDER [None]
  - ELECTROCARDIOGRAM QT CORRECTED INTERVAL PROLONGED [None]
